FAERS Safety Report 21299638 (Version 1)
Quarter: 2022Q3

REPORT INFORMATION
  Report Type: Spontaneous
  Country: US (occurrence: US)
  Receive Date: 20220906
  Receipt Date: 20220906
  Transmission Date: 20221027
  Serious: No
  Sender: FDA-Public Use
  Company Number: US-BRISTOL-MYERS SQUIBB COMPANY-2022-099972

PATIENT
  Age: 69 Year
  Sex: Female

DRUGS (18)
  1. POMALYST [Suspect]
     Active Substance: POMALIDOMIDE
     Indication: Plasma cell myeloma
     Dosage: TAKE 1 CAPSULE  BY MOUTH EVERY DAY FOR 21 DAYS, THEN 7 DAYS OFF
     Route: 048
     Dates: start: 20190502
  2. ASPIRIN [Concomitant]
     Active Substance: ASPIRIN
     Dosage: ASPIRIN LOW TAB 81MG EC;
  3. METFORMIN [Concomitant]
     Active Substance: METFORMIN HYDROCHLORIDE
     Dosage: METFORMIN TAB 500MG
  4. DICLOFENAC [Concomitant]
     Active Substance: DICLOFENAC
     Dosage: DICLOFENAC TAB 100MG ER;
  5. CALCIUM [Concomitant]
     Active Substance: CALCIUM
     Dosage: CALCIUM 500 TAB +D;
  6. ACYCLOVIR [Concomitant]
     Active Substance: ACYCLOVIR
     Dosage: ACYCLOVIR TAB 400MG
  7. VITAMINS [Concomitant]
     Active Substance: VITAMINS
  8. BENICAR [Concomitant]
     Active Substance: OLMESARTAN MEDOXOMIL
     Dosage: BENICAR TAB 20MG
  9. CEPHALEXIN [Concomitant]
     Active Substance: CEPHALEXIN
     Dosage: CEPHALEXIN CAP 500MG
  10. COENZYME Q10 PLUS [Concomitant]
     Dosage: COENZYME Q10 POW;
  11. FISH OIL [Concomitant]
     Active Substance: FISH OIL
     Dosage: FISH OIL CAP 1000MG;
  12. KEFLEX [Concomitant]
     Active Substance: CEPHALEXIN
     Dosage: KEFLEX CAP 250MG
  13. KLOR-CON [Concomitant]
     Active Substance: POTASSIUM CHLORIDE
     Dosage: KLOR-CON 10 TAB 10MEQ ER;
  14. MAGNESIUM [Concomitant]
     Active Substance: MAGNESIUM
     Dosage: MAGNESIUM TAB 250MG
  15. NIFEDIPINE [Concomitant]
     Active Substance: NIFEDIPINE
     Dosage: NIFEDIPINE TAB 30MG ER;
  16. POTASSIUM M [Concomitant]
     Dosage: POTASSIUM TAB 75MG;
  17. VITAMIN B6 F [Concomitant]
     Dosage: ITAMIN B6 TAB 50MG;
  18. VITAMIN D NOS [Concomitant]
     Active Substance: VITAMIN D NOS
     Dosage: ITAMIN D CAP 50000UNT

REACTIONS (1)
  - Sinusitis [Unknown]
